FAERS Safety Report 6578185-0 (Version None)
Quarter: 2010Q1

REPORT INFORMATION
  Report Type: 
  Country: None (occurrence: None)
  Receive Date: 20100211
  Receipt Date: 20100202
  Transmission Date: 20100710
  Serious: Yes (Death)
  Sender: FDA-Public Use
  Company Number: GXKR2010US01436

PATIENT
  Age: 25 Year
  Sex: Male

DRUGS (3)
  1. METHADONE (NGX) [Suspect]
  2. SERTRALINE HCL [Interacting]
     Indication: ANXIETY DISORDER
  3. TETRAHYDROCANNABINOL [Interacting]

REACTIONS (4)
  - BRAIN OEDEMA [None]
  - DRUG INTERACTION [None]
  - INTENTIONAL DRUG MISUSE [None]
  - PULMONARY OEDEMA [None]
